FAERS Safety Report 11047176 (Version 1)
Quarter: 2015Q2

REPORT INFORMATION
  Report Type: Spontaneous
  Country: AT (occurrence: AT)
  Receive Date: 20150420
  Receipt Date: 20150420
  Transmission Date: 20150821
  Serious: Yes (Death, Hospitalization)
  Sender: FDA-Public Use
  Company Number: AT-SA-2014SA174674

PATIENT
  Sex: Male

DRUGS (7)
  1. FOLINIC ACID [Concomitant]
     Active Substance: LEUCOVORIN
     Dates: start: 20131029
  2. ACECOMB [Concomitant]
     Active Substance: HYDROCHLOROTHIAZIDE\LISINOPRIL
  3. ACEMIN [Concomitant]
     Active Substance: LISINOPRIL
  4. ZALTRAP [Suspect]
     Active Substance: ZIV-AFLIBERCEPT
     Indication: RECTAL ADENOCARCINOMA
     Dosage: SO FAR 19 CYCLES
     Route: 042
     Dates: start: 20131029
  5. IRINOTECAN [Concomitant]
     Active Substance: IRINOTECAN
     Dates: start: 20131029
  6. FLUOROURACIL. [Concomitant]
     Active Substance: FLUOROURACIL
     Dates: start: 20131029
  7. ADALAT [Concomitant]
     Active Substance: NIFEDIPINE

REACTIONS (15)
  - Arthralgia [Unknown]
  - Oedema peripheral [Unknown]
  - Weight increased [Unknown]
  - Herpes zoster [Recovered/Resolved]
  - Trigger finger [Unknown]
  - C-reactive protein increased [Unknown]
  - Fatigue [Unknown]
  - Pancytopenia [Fatal]
  - Temperature intolerance [Unknown]
  - Oedema peripheral [Unknown]
  - Blood pressure increased [Unknown]
  - Rash [Unknown]
  - Infection [Fatal]
  - Stasis dermatitis [Unknown]
  - Diarrhoea [Unknown]

NARRATIVE: CASE EVENT DATE: 20131126
